FAERS Safety Report 20140943 (Version 26)
Quarter: 2023Q1

REPORT INFORMATION
  Report Type: Report from Study
  Country: US (occurrence: US)
  Receive Date: 20211202
  Receipt Date: 20230224
  Transmission Date: 20230418
  Serious: No
  Sender: FDA-Public Use
  Company Number: US-NOVARTISTESTPH-NVSC2021US274941

PATIENT
  Sex: Female
  Weight: 75.749 kg

DRUGS (16)
  1. TREPROSTINIL [Suspect]
     Active Substance: TREPROSTINIL
     Indication: Pulmonary arterial hypertension
     Dosage: 20 NG/KG/MIN, CONTINUOUS
     Route: 042
     Dates: start: 20211111
  2. TREPROSTINIL [Suspect]
     Active Substance: TREPROSTINIL
     Dosage: 36 NG
     Route: 065
     Dates: start: 20211207
  3. TREPROSTINIL [Suspect]
     Active Substance: TREPROSTINIL
     Dosage: 38 NG/KG/MIN, CONTINUOUS
     Route: 042
  4. TREPROSTINIL [Suspect]
     Active Substance: TREPROSTINIL
     Dosage: 42 NG/KG/MIN, CONTINUOUS
     Route: 042
  5. TREPROSTINIL [Suspect]
     Active Substance: TREPROSTINIL
     Dosage: 44 NG/KG/MIN, CONTINUOUS
     Route: 042
  6. TREPROSTINIL [Suspect]
     Active Substance: TREPROSTINIL
     Dosage: 50 NG/KG/MIN, CONTINUOUS
     Route: 042
  7. TREPROSTINIL [Suspect]
     Active Substance: TREPROSTINIL
     Dosage: 54 NG/KG/MIN, CONTINUOUS
     Route: 042
  8. TREPROSTINIL [Suspect]
     Active Substance: TREPROSTINIL
     Dosage: 52 NG/KG/MIN, CONTINUOUS
     Route: 042
  9. TREPROSTINIL [Suspect]
     Active Substance: TREPROSTINIL
     Dosage: 52 NG/KG/MIN, CONTINUOUS
     Route: 042
  10. TREPROSTINIL [Suspect]
     Active Substance: TREPROSTINIL
     Dosage: 52 NG/KG/MIN, CONTINUOUS
     Route: 042
  11. TREPROSTINIL [Suspect]
     Active Substance: TREPROSTINIL
     Dosage: 52 NG/KG/MIN, CONTINOUS
     Route: 042
  12. TREPROSTINIL [Suspect]
     Active Substance: TREPROSTINIL
     Dosage: 52 NG/KG/MIN, CONTINOUS
     Route: 042
  13. TREPROSTINIL [Suspect]
     Active Substance: TREPROSTINIL
     Dosage: 52 NG/KG/MIN, CONTINOUS
     Route: 042
  14. OFEV [Suspect]
     Active Substance: NINTEDANIB
     Indication: Pulmonary fibrosis
     Dosage: UNK
     Route: 065
  15. AMBRISENTAN [Concomitant]
     Active Substance: AMBRISENTAN
     Indication: Product used for unknown indication
     Dosage: UNK
     Route: 065
  16. SILDENAFIL CITRATE [Concomitant]
     Active Substance: SILDENAFIL CITRATE
     Indication: Product used for unknown indication
     Dosage: UNK
     Route: 065

REACTIONS (26)
  - Pain in extremity [Not Recovered/Not Resolved]
  - Scratch [Unknown]
  - Limb discomfort [Unknown]
  - Gout [Unknown]
  - Migraine [Unknown]
  - Obsessive-compulsive disorder [Unknown]
  - Rash vesicular [Unknown]
  - Hypersensitivity [Unknown]
  - Arthropathy [Unknown]
  - Weight increased [Unknown]
  - Herpes zoster [Unknown]
  - Nerve injury [Unknown]
  - Sinus disorder [Unknown]
  - Blood glucose decreased [Unknown]
  - Weight decreased [Unknown]
  - Lethargy [Unknown]
  - Pain [Unknown]
  - Swelling [Not Recovered/Not Resolved]
  - Diarrhoea [Not Recovered/Not Resolved]
  - Nausea [Unknown]
  - Headache [Not Recovered/Not Resolved]
  - Catheter site rash [Recovered/Resolved]
  - Rash [Unknown]
  - Catheter site pain [Unknown]
  - Device breakage [Unknown]
  - Infusion site pain [Unknown]
